FAERS Safety Report 9888720 (Version 2)
Quarter: 2014Q1

REPORT INFORMATION
  Report Type: Spontaneous
  Country: NL (occurrence: NL)
  Receive Date: 20140211
  Receipt Date: 20140227
  Transmission Date: 20141002
  Serious: Yes (Hospitalization, Other)
  Sender: FDA-Public Use
  Company Number: NL-B.I. PHARMACEUTICALS,INC./RIDGEFIELD-2014-BI-05261GD

PATIENT
  Sex: Female

DRUGS (3)
  1. BISACODYL [Suspect]
     Indication: PRODUCT USED FOR UNKNOWN INDICATION
     Route: 065
  2. HYDROXYUREA [Suspect]
     Indication: PRODUCT USED FOR UNKNOWN INDICATION
     Route: 065
  3. PHENPROCOUMON [Concomitant]
     Indication: PRODUCT USED FOR UNKNOWN INDICATION
     Route: 065

REACTIONS (20)
  - Hypoaldosteronism [Unknown]
  - Drug abuse [Unknown]
  - Hyperadrenocorticism [Unknown]
  - Dyspnoea [Unknown]
  - Polydipsia [Unknown]
  - Polyuria [Unknown]
  - Blood gases abnormal [Unknown]
  - Hypokalaemia [Unknown]
  - Metabolic acidosis [Unknown]
  - Metabolic alkalosis [Unknown]
  - Respiratory alkalosis [Unknown]
  - Gastrointestinal disorder [Unknown]
  - Hypercalcaemia [Recovered/Resolved]
  - Hypercalciuria [Unknown]
  - Nephrolithiasis [Unknown]
  - Hyponatraemia [Recovered/Resolved]
  - Iron deficiency [Unknown]
  - Asthma [Unknown]
  - Thrombocytosis [Unknown]
  - Polycythaemia [Unknown]
